FAERS Safety Report 6377723-0 (Version None)
Quarter: 2009Q3

REPORT INFORMATION
  Report Type: 
  Country: None (occurrence: None)
  Receive Date: 20090925
  Receipt Date: 20090914
  Transmission Date: 20100115
  Serious: Yes (Other)
  Sender: FDA-Public Use
  Company Number: JP-PFIZER INC-2009262792

PATIENT
  Age: 81 Year

DRUGS (6)
  1. ZOLOFT [Suspect]
     Dosage: 50 MG A DAY
     Route: 048
     Dates: start: 20090818, end: 20090801
  2. THYRADIN-S [Concomitant]
     Dosage: UNK
  3. LIPITOR [Concomitant]
     Dosage: UNK
     Dates: start: 20060525
  4. LENDORMIN [Concomitant]
     Dosage: UNK
  5. EXCEGRAN [Concomitant]
     Dosage: UNK
     Dates: start: 20090724
  6. BERIZYM [Concomitant]
     Dosage: UNK

REACTIONS (1)
  - OCULOMUCOCUTANEOUS SYNDROME [None]
